FAERS Safety Report 7413911-X (Version None)
Quarter: 2011Q2

REPORT INFORMATION
  Report Type: 
  Country: None (occurrence: None)
  Receive Date: 20110414
  Receipt Date: 20110408
  Transmission Date: 20111010
  Serious: Yes (Hospitalization)
  Sender: FDA-Public Use
  Company Number: US-BIOGENIDEC-2011BI000837

PATIENT
  Age: 56 Year
  Sex: Female

DRUGS (7)
  1. ACCUPRIL [Concomitant]
     Indication: HYPERTENSION
  2. LANOXIN [Concomitant]
     Indication: HYPERTENSION
  3. HYDROCHLOROTHIAZIDE [Concomitant]
     Indication: HYPERTENSION
  4. SEROQUEL [Concomitant]
     Indication: SCHIZOPHRENIA
  5. AVONEX [Suspect]
     Indication: MULTIPLE SCLEROSIS
     Route: 030
     Dates: start: 20101204, end: 20110101
  6. SYMBICORT [Concomitant]
     Indication: ASTHMA
     Route: 055
  7. NAPROXEN [Concomitant]
     Indication: ARTHRALGIA

REACTIONS (4)
  - CEREBROVASCULAR ACCIDENT [None]
  - CONFUSIONAL STATE [None]
  - BLOOD GLUCOSE INCREASED [None]
  - MUSCULAR WEAKNESS [None]
